FAERS Safety Report 9842055 (Version 1)
Quarter: 2014Q1

REPORT INFORMATION
  Report Type: Spontaneous
  Country: US (occurrence: None)
  Receive Date: 20140123
  Receipt Date: 20140123
  Transmission Date: 20141002
  Serious: Yes (Hospitalization)
  Sender: FDA-Public Use
  Company Number: None

PATIENT
  Age: 62 Year
  Sex: Female

DRUGS (1)
  1. METHYLDOPA [Suspect]
     Dosage: TAKE 1 TABLET BID PO
     Route: 048

REACTIONS (4)
  - Chest pain [None]
  - Paraesthesia [None]
  - Heart rate decreased [None]
  - Blood pressure increased [None]
